FAERS Safety Report 13335527 (Version 1)
Quarter: 2017Q1

REPORT INFORMATION
  Report Type: Report from Study
  Country: AR (occurrence: AR)
  Receive Date: 20170314
  Receipt Date: 20170314
  Transmission Date: 20170428
  Serious: Yes (Hospitalization)
  Sender: FDA-Public Use
  Company Number: PHHY2017AR038116

PATIENT
  Sex: Male

DRUGS (1)
  1. DIOVAN [Suspect]
     Active Substance: VALSARTAN
     Indication: BLOOD PRESSURE INCREASED
     Dosage: 80 OT, QD
     Route: 065

REACTIONS (4)
  - Blood pressure diastolic decreased [Recovering/Resolving]
  - Weight decreased [Recovering/Resolving]
  - Fall [Recovering/Resolving]
  - Blood pressure systolic increased [Recovering/Resolving]
